FAERS Safety Report 8219429-9 (Version None)
Quarter: 2012Q1

REPORT INFORMATION
  Report Type: 
  Country: None (occurrence: None)
  Receive Date: 20120319
  Receipt Date: 20120314
  Transmission Date: 20120608
  Serious: Yes (Other)
  Sender: FDA-Public Use
  Company Number: US-PFIZER INC-2012068691

PATIENT
  Sex: Male

DRUGS (7)
  1. ASPIRIN [Concomitant]
  2. VENOFER [Concomitant]
  3. EPOGEN [Concomitant]
  4. LIPITOR [Suspect]
     Dosage: 10 MG, 1X/DAY
  5. SENSIPAR [Concomitant]
  6. SEVELAMER [Concomitant]
  7. CLONIDINE [Concomitant]

REACTIONS (1)
  - RENAL FAILURE CHRONIC [None]
